FAERS Safety Report 8111914-3 (Version None)
Quarter: 2012Q1

REPORT INFORMATION
  Report Type: 
  Country: None (occurrence: None)
  Receive Date: 20120203
  Receipt Date: 20110328
  Transmission Date: 20120608
  Serious: No
  Sender: FDA-Public Use
  Company Number: US-GLAXOSMITHKLINE-A0920297A

PATIENT
  Age: 61 Year
  Sex: Female

DRUGS (5)
  1. CHEMOTHERAPY [Concomitant]
     Indication: BREAST CANCER
  2. ARIXTRA [Suspect]
     Indication: DEEP VEIN THROMBOSIS
     Dosage: 2.5MG PER DAY
     Route: 058
     Dates: start: 20110216
  3. FENTANYL CITRATE [Concomitant]
  4. MIROLAX [Concomitant]
  5. HALAVEN [Concomitant]

REACTIONS (4)
  - ABDOMINAL PAIN UPPER [None]
  - PLATELET COUNT DECREASED [None]
  - CONSTIPATION [None]
  - WHITE BLOOD CELL COUNT DECREASED [None]
